FAERS Safety Report 6349633-6 (Version None)
Quarter: 2009Q3

REPORT INFORMATION
  Report Type: 
  Country: None (occurrence: None)
  Receive Date: 20090911
  Receipt Date: 20090901
  Transmission Date: 20100115
  Serious: Yes (Other)
  Sender: FDA-Public Use
  Company Number: US-ABBOTT-09P-163-0595285-00

PATIENT
  Sex: Male
  Weight: 59.02 kg

DRUGS (1)
  1. HUMIRA [Suspect]
     Indication: RHEUMATOID ARTHRITIS
     Route: 058
     Dates: start: 20040602

REACTIONS (4)
  - BLADDER CANCER [None]
  - BLADDER TRANSITIONAL CELL CARCINOMA [None]
  - ERYTHEMA [None]
  - NEPHROLITHIASIS [None]
